FAERS Safety Report 6427509-3 (Version None)
Quarter: 2009Q4

REPORT INFORMATION
  Report Type: 
  Country: None (occurrence: None)
  Receive Date: 20091104
  Receipt Date: 20091029
  Transmission Date: 20100525
  Serious: Yes (Other)
  Sender: FDA-Public Use
  Company Number: PHHY2009FR47608

PATIENT
  Sex: Female

DRUGS (3)
  1. NEORAL [Suspect]
     Indication: ORGAN TRANSPLANT
     Dosage: UNK
     Dates: start: 19980101
  2. MYCOPHENOLATE MOFETIL [Suspect]
     Indication: ORGAN TRANSPLANT
     Dosage: UNK
     Dates: start: 19980101
  3. CORTICOSTEROIDS [Suspect]
     Indication: ORGAN TRANSPLANT
     Dosage: UNK
     Dates: start: 19980101

REACTIONS (2)
  - EPSTEIN-BARR VIRUS INFECTION [None]
  - OBLITERATIVE BRONCHIOLITIS [None]
